FAERS Safety Report 12497487 (Version 1)
Quarter: 2016Q2

REPORT INFORMATION
  Report Type: Report from Study
  Country: BR (occurrence: BR)
  Receive Date: 20160624
  Receipt Date: 20160624
  Transmission Date: 20160815
  Serious: Yes (Other)
  Sender: FDA-Public Use
  Company Number: BR-JNJFOC-20160614608

PATIENT
  Sex: Female
  Weight: 120 kg

DRUGS (2)
  1. REMICADE [Suspect]
     Active Substance: INFLIXIMAB
     Indication: PSORIATIC ARTHROPATHY
     Route: 042
     Dates: end: 201406
  2. RITUXIMAB [Concomitant]
     Active Substance: RITUXIMAB
     Route: 065

REACTIONS (5)
  - Electrophoresis protein abnormal [Unknown]
  - Weight increased [Unknown]
  - Abasia [Unknown]
  - Drug prescribing error [Unknown]
  - Off label use [Unknown]
